FAERS Safety Report 8880000 (Version 2)
Quarter: 2012Q4

REPORT INFORMATION
  Report Type: 
  Country: US (occurrence: US)
  Receive Date: 20121031
  Receipt Date: 20121105
  Transmission Date: 20130627
  Serious: Yes (Other)
  Sender: FDA-Public Use
  Company Number: US-JNJFOC-20121014276

PATIENT

DRUGS (3)
  1. XARELTO [Suspect]
     Indication: CEREBROVASCULAR ACCIDENT PROPHYLAXIS
     Route: 048
     Dates: start: 2012, end: 201210
  2. XARELTO [Suspect]
     Indication: ATRIAL FIBRILLATION
     Route: 048
     Dates: start: 2012, end: 201210
  3. MULTAQ [Concomitant]

REACTIONS (6)
  - International normalised ratio increased [Recovered/Resolved]
  - Contusion [Unknown]
  - Adverse event [Unknown]
  - Faeces discoloured [Recovered/Resolved]
  - Haemoglobin decreased [Unknown]
  - Fall [Recovered/Resolved]
